FAERS Safety Report 8385067-0 (Version None)
Quarter: 2012Q2

REPORT INFORMATION
  Report Type: 
  Country: None (occurrence: None)
  Receive Date: 20120524
  Receipt Date: 20120517
  Transmission Date: 20120825
  Serious: Yes (Hospitalization, Other)
  Sender: FDA-Public Use
  Company Number: US-RB-040562-12

PATIENT
  Age: 38 Year
  Sex: Male

DRUGS (2)
  1. SUBOXONE [Suspect]
     Indication: DRUG DEPENDENCE
     Route: 060
     Dates: start: 20110101, end: 20120216
  2. SUBOXONE [Suspect]
     Route: 060
     Dates: start: 20120516, end: 20120516

REACTIONS (7)
  - ROAD TRAFFIC ACCIDENT [None]
  - WRONG TECHNIQUE IN DRUG USAGE PROCESS [None]
  - BACK PAIN [None]
  - THORACIC VERTEBRAL FRACTURE [None]
  - ABDOMINAL PAIN UPPER [None]
  - URETERIC RUPTURE [None]
  - RENAL INJURY [None]
